FAERS Safety Report 11829919 (Version 1)
Quarter: 2015Q4

REPORT INFORMATION
  Report Type: Spontaneous
  Country: FR (occurrence: FR)
  Receive Date: 20151213
  Receipt Date: 20151213
  Transmission Date: 20160305
  Serious: Yes (Hospitalization)
  Sender: FDA-Public Use
  Company Number: FR-ASTRAZENECA-2015SF23176

PATIENT
  Age: 15182 Day
  Sex: Male

DRUGS (9)
  1. TEMERIT [Concomitant]
     Active Substance: NEBIVOLOL
     Indication: HYPERTENSION
  2. ZOPHREN [Suspect]
     Active Substance: ONDANSETRON
     Route: 048
     Dates: start: 20151106, end: 20151115
  3. INEXIUM [Suspect]
     Active Substance: ESOMEPRAZOLE
     Route: 048
     Dates: start: 20151106, end: 20151115
  4. LITAK [Suspect]
     Active Substance: CLADRIBINE
     Route: 058
     Dates: start: 20151105, end: 20151109
  5. ZYLORIC [Suspect]
     Active Substance: ALLOPURINOL
     Route: 065
     Dates: start: 201511, end: 201511
  6. ZELITREX [Suspect]
     Active Substance: VALACYCLOVIR HYDROCHLORIDE
     Route: 048
     Dates: start: 20151106, end: 20151115
  7. PRIMPERAN [Suspect]
     Active Substance: METOCLOPRAMIDE HYDROCHLORIDE
     Route: 048
     Dates: start: 20151106, end: 20151115
  8. BACTRIM [Suspect]
     Active Substance: SULFAMETHOXAZOLE\TRIMETHOPRIM
     Route: 048
     Dates: start: 20151109, end: 20151113
  9. COTAREG [Concomitant]
     Active Substance: HYDROCHLOROTHIAZIDE\VALSARTAN
     Indication: HYPERTENSION

REACTIONS (5)
  - Rash maculo-papular [Recovering/Resolving]
  - Face oedema [Recovering/Resolving]
  - Pyrexia [Recovered/Resolved]
  - Myalgia [Unknown]
  - Eyelid oedema [Recovered/Resolved]

NARRATIVE: CASE EVENT DATE: 20151113
